FAERS Safety Report 5449396-2 (Version None)
Quarter: 2007Q3

REPORT INFORMATION
  Report Type: 
  Country: None (occurrence: None)
  Receive Date: 20070911
  Receipt Date: 20070830
  Transmission Date: 20080115
  Serious: Yes (Other)
  Sender: FDA-Public Use
  Company Number: GB-PFIZER INC-2007072884

PATIENT
  Age: 69 Year
  Sex: Female

DRUGS (2)
  1. CHAMPIX [Suspect]
     Route: 048
     Dates: start: 20070629, end: 20070707
  2. GABAPENTIN [Concomitant]
     Route: 048

REACTIONS (4)
  - DERMATITIS ALLERGIC [None]
  - ERYTHEMA [None]
  - INFLAMMATION [None]
  - THROAT TIGHTNESS [None]
